FAERS Safety Report 9133308 (Version 3)
Quarter: 2013Q1

REPORT INFORMATION
  Report Type: Report from Study
  Country: BR (occurrence: BR)
  Receive Date: 20130301
  Receipt Date: 20130327
  Transmission Date: 20140127
  Serious: Yes (Hospitalization, Other)
  Sender: FDA-Public Use
  Company Number: BR-ABBOTT-13P-020-1055676-00

PATIENT
  Age: 42 Year
  Sex: Female
  Weight: 60 kg

DRUGS (15)
  1. HUMIRA [Suspect]
     Indication: RHEUMATOID ARTHRITIS
     Route: 058
     Dates: start: 20130125
  2. DEPO-PROVERA [Concomitant]
     Indication: MENSTRUAL CYCLE MANAGEMENT
     Route: 030
  3. PREDNISONE [Concomitant]
     Indication: RHEUMATOID ARTHRITIS
     Dosage: 2 TABLETS IN THE MORNING AND 1 TABLET IN THE EVENING
     Route: 048
  4. PREDNISONE [Concomitant]
     Dosage: DECREASED
     Dates: start: 20130217
  5. PREDNISONE [Concomitant]
  6. LEFLUNOMIDA [Concomitant]
     Indication: RHEUMATOID ARTHRITIS
     Route: 048
  7. FOLIC ACID [Concomitant]
     Indication: RHEUMATOID ARTHRITIS
     Dosage: FRIDAY
     Route: 048
  8. NAPROXEN [Concomitant]
     Indication: PAIN
     Dosage: 500 (UNKNOWN UNIT)
     Route: 048
  9. METHOTREXATE [Concomitant]
     Indication: RHEUMATOID ARTHRITIS
     Route: 048
  10. SULFASALAZINE [Concomitant]
     Indication: RHEUMATOID ARTHRITIS
     Dosage: IN THE MORNING AND IN THE EVENING
     Route: 048
     Dates: end: 20130217
  11. SULFASALAZINE [Concomitant]
     Dosage: DECREASED
     Dates: start: 20130217
  12. SULFASALAZINE [Concomitant]
  13. CARBAMAZEPINE [Concomitant]
     Indication: CONVULSION
     Dosage: MORNING / AFTERNOON / EVENING
     Route: 048
  14. PHENOBARBITAL [Concomitant]
     Indication: CONVULSION
     Dosage: 2.5 TABLETS IN THE AM AND 1.5 TABLETS IN THE PM DAILY
     Route: 048
     Dates: end: 20130217
  15. PHENOBARBITAL [Concomitant]

REACTIONS (5)
  - Tendon injury [Recovering/Resolving]
  - Cough [Not Recovered/Not Resolved]
  - Dry mouth [Not Recovered/Not Resolved]
  - Purulent discharge [Not Recovered/Not Resolved]
  - Scar [Unknown]
